FAERS Safety Report 21119068 (Version 1)
Quarter: 2022Q3

REPORT INFORMATION
  Report Type: Report from Study
  Country: MX (occurrence: MX)
  Receive Date: 20220722
  Receipt Date: 20220722
  Transmission Date: 20221027
  Serious: Yes (Other)
  Sender: FDA-Public Use
  Company Number: MX-NOVARTISPH-NVSC2022MX166148

PATIENT
  Sex: Male
  Weight: 48 kg

DRUGS (1)
  1. EXFORGE [Suspect]
     Active Substance: AMLODIPINE BESYLATE\VALSARTAN
     Indication: Hypertension
     Dosage: 0.5 DOSAGE FORM OF 5/160 MG, QD, BY MOUTH, STARTED APPROXIMATELY 15 YEARS AGO
     Route: 048

REACTIONS (9)
  - Hernia [Recovered/Resolved]
  - Strangulated hernia [Recovered/Resolved]
  - Muscle atrophy [Unknown]
  - Decreased appetite [Unknown]
  - Body height decreased [Recovering/Resolving]
  - Gastrointestinal disorder [Recovered/Resolved]
  - Weight decreased [Recovering/Resolving]
  - Underdose [Unknown]
  - Wrong technique in product usage process [Unknown]
